FAERS Safety Report 6980742-4 (Version None)
Quarter: 2010Q3

REPORT INFORMATION
  Report Type: 
  Country: None (occurrence: None)
  Receive Date: 20100909
  Receipt Date: 20100826
  Transmission Date: 20110219
  Serious: Yes (Hospitalization)
  Sender: FDA-Public Use
  Company Number: 2010-3015

PATIENT
  Age: 75 Year
  Sex: Female

DRUGS (1)
  1. APO-GO AMPOULES (APO-GO)(APOMORPHINE HYDROCHLORIDE)(APOMORPHINE HYDROC [Suspect]
     Indication: PRODUCT USED FOR UNKNOWN INDICATION
     Dosage: NOT REPORTED (NOT REPORTED,13 IN 24 HR),SUBCUTANEOUS
     Route: 058
     Dates: start: 20100222

REACTIONS (1)
  - HYPERKINESIA [None]
